FAERS Safety Report 23773459 (Version 1)
Quarter: 2024Q2

REPORT INFORMATION
  Report Type: Spontaneous
  Country: US (occurrence: US)
  Receive Date: 20240423
  Receipt Date: 20240423
  Transmission Date: 20240716
  Serious: No
  Sender: FDA-Public Use
  Company Number: US-BAYER-2024A054645

PATIENT
  Age: 56 Year
  Sex: Female

DRUGS (18)
  1. CIPROFLOXACIN [Suspect]
     Active Substance: CIPROFLOXACIN
  2. ALDACTONE [Concomitant]
     Active Substance: SPIRONOLACTONE
  3. AMBIEN CR [Concomitant]
     Active Substance: ZOLPIDEM TARTRATE
  4. CLOBEX [CLOXACILLIN SODIUM] [Concomitant]
  5. COLESTIPOL [Concomitant]
     Active Substance: COLESTIPOL
  6. ELIQUIS [Concomitant]
     Active Substance: APIXABAN
  7. ESTRATEST [Concomitant]
     Active Substance: ESTROGENS, ESTERIFIED\METHYLTESTOSTERONE
  8. MOMETASONE FUROATE [Concomitant]
     Active Substance: MOMETASONE FUROATE
  9. GABAPENTIN [Concomitant]
     Active Substance: GABAPENTIN
  10. HYDROCHLOROTHIAZIDE\LISINOPRIL [Concomitant]
     Active Substance: HYDROCHLOROTHIAZIDE\LISINOPRIL
  11. LOPERAMIDE HYDROCHLORIDE [Concomitant]
     Active Substance: LOPERAMIDE HYDROCHLORIDE
  12. METOPROLOL SUCCINATE [Concomitant]
     Active Substance: METOPROLOL SUCCINATE
  13. NORVASC [Concomitant]
     Active Substance: AMLODIPINE BESYLATE
  14. PEPCID [Concomitant]
     Active Substance: FAMOTIDINE
  15. HYDROXYCHLOROQUINE [Concomitant]
     Active Substance: HYDROXYCHLOROQUINE
  16. PRAVASTATIN [Concomitant]
     Active Substance: PRAVASTATIN
  17. PREDNISONE [Concomitant]
     Active Substance: PREDNISONE
  18. PRILOSEC [Concomitant]
     Active Substance: OMEPRAZOLE MAGNESIUM

REACTIONS (2)
  - Rash [Unknown]
  - Phlebitis [Unknown]
